FAERS Safety Report 16645552 (Version 1)
Quarter: 2019Q3

REPORT INFORMATION
  Report Type: Spontaneous
  Country: US (occurrence: US)
  Receive Date: 20190730
  Receipt Date: 20190730
  Transmission Date: 20191004
  Serious: No
  Sender: FDA-Public Use
  Company Number: US-ELI_LILLY_AND_COMPANY-US201907013123

PATIENT
  Sex: Male

DRUGS (2)
  1. LANTUS [Concomitant]
     Active Substance: INSULIN GLARGINE
     Indication: TYPE 2 DIABETES MELLITUS
  2. HUMALOG [Suspect]
     Active Substance: INSULIN LISPRO
     Indication: TYPE 2 DIABETES MELLITUS
     Dosage: 90 U, QID
     Route: 065
     Dates: start: 2014

REACTIONS (3)
  - Blood glucose abnormal [Not Recovered/Not Resolved]
  - Incorrect dose administered [Unknown]
  - Glycosylated haemoglobin increased [Not Recovered/Not Resolved]
